FAERS Safety Report 15317001 (Version 1)
Quarter: 2018Q3

REPORT INFORMATION
  Report Type: Spontaneous
  Country: US (occurrence: US)
  Receive Date: 20180816
  Receipt Date: 20180816
  Transmission Date: 20181010
  Serious: Yes (Other)
  Sender: FDA-Public Use
  Company Number: None

PATIENT
  Age: 78 Year
  Sex: Male

DRUGS (2)
  1. EOVIST [Suspect]
     Active Substance: GADOXETATE DISODIUM
  2. PATIROMER [Concomitant]
     Active Substance: PATIROMER

REACTIONS (3)
  - Dyspnoea [None]
  - Nasal discomfort [None]
  - Burning sensation [None]

NARRATIVE: CASE EVENT DATE: 20170320
